FAERS Safety Report 5585350-8 (Version None)
Quarter: 2008Q1

REPORT INFORMATION
  Report Type: 
  Country: None (occurrence: None)
  Receive Date: 20080109
  Receipt Date: 20080103
  Transmission Date: 20080703
  Serious: Yes (Death)
  Sender: FDA-Public Use
  Company Number: US-ROCHE-529213

PATIENT
  Age: 61 Year
  Sex: Male

DRUGS (1)
  1. CELLCEPT [Suspect]
     Indication: PROPHYLAXIS AGAINST TRANSPLANT REJECTION
     Dosage: CELLCEPT WAS FIRST SHIPPED FROM THE PHARMACY TO THE PATIENT IN MARCH 2006, HOWEVER, THE THERAPY BEG+
     Route: 065
     Dates: end: 20070110

REACTIONS (1)
  - DEATH [None]
